FAERS Safety Report 10627422 (Version 1)
Quarter: 2014Q4

REPORT INFORMATION
  Report Type: Other
  Country: SI (occurrence: SI)
  Receive Date: 20141205
  Receipt Date: 20141205
  Transmission Date: 20150529
  Serious: Yes (Hospitalization)
  Sender: FDA-Public Use
  Company Number: SI-MYLANLABS-2014M1012514

PATIENT
  Age: 43 Year
  Sex: Male

DRUGS (3)
  1. PIPERACILLIN, TAZOBACTAM [Suspect]
     Active Substance: PIPERACILLIN SODIUM\TAZOBACTAM SODIUM
     Indication: ABSCESS
     Dosage: 4.5 G, UNK
     Dates: start: 20141001, end: 20141023
  2. LANZUL [Concomitant]
     Active Substance: LANSOPRAZOLE
     Dosage: UNK
  3. CLEXANE [Concomitant]
     Active Substance: ENOXAPARIN SODIUM
     Dosage: 4000 IU/DAY

REACTIONS (2)
  - Pancytopenia [Recovered/Resolved]
  - Disease progression [Recovered/Resolved]

NARRATIVE: CASE EVENT DATE: 20141023
